FAERS Safety Report 12798875 (Version 1)
Quarter: 2016Q3

REPORT INFORMATION
  Report Type: Spontaneous
  Country: US (occurrence: US)
  Receive Date: 20160930
  Receipt Date: 20160930
  Transmission Date: 20161109
  Serious: No
  Sender: FDA-Public Use
  Company Number: US-BAYER-2016-189484

PATIENT
  Age: 19 Month
  Sex: Male
  Weight: 12.7 kg

DRUGS (1)
  1. CHILDREN CLARITIN ALLERGY [Suspect]
     Active Substance: LORATADINE
     Dosage: DOSAGE AS USED: 1
     Route: 048
     Dates: end: 20160927

REACTIONS (1)
  - Expired product administered [None]
